FAERS Safety Report 4698235-6 (Version None)
Quarter: 2005Q2

REPORT INFORMATION
  Report Type: 
  Country: None (occurrence: None)
  Receive Date: 20050623
  Receipt Date: 20050208
  Transmission Date: 20051028
  Serious: Yes (Death, Other)
  Sender: FDA-Public Use
  Company Number: PHEH2005US01832

PATIENT
  Age: 70 Year
  Sex: Male
  Weight: 91 kg

DRUGS (9)
  1. CARBOPLATIN [Concomitant]
  2. TAXOL [Concomitant]
  3. TAXOTERE [Concomitant]
  4. GEMZAR [Concomitant]
  5. ARANESP [Concomitant]
  6. NEULASTA [Concomitant]
  7. VITAMIN B COMPLEX CAP [Concomitant]
  8. ANDROGEL [Concomitant]
  9. ZOMETA [Suspect]
     Indication: METASTASES TO BONE
     Dosage: 4 MG EVERY MONTH
     Dates: start: 20040213, end: 20041027

REACTIONS (6)
  - GINGIVAL PAIN [None]
  - MALIGNANT NEOPLASM PROGRESSION [None]
  - METASTASES TO CENTRAL NERVOUS SYSTEM [None]
  - ORAL SURGERY [None]
  - OSTEONECROSIS [None]
  - TOOTH IMPACTED [None]
